FAERS Safety Report 7075767-7 (Version None)
Quarter: 2010Q4

REPORT INFORMATION
  Report Type: 
  Country: None (occurrence: None)
  Receive Date: 20101101
  Receipt Date: 20101021
  Transmission Date: 20110411
  Serious: Yes (Hospitalization)
  Sender: FDA-Public Use
  Company Number: US-BIOGENIDEC-2010BI035671

PATIENT
  Age: 51 Year
  Sex: Male
  Weight: 143 kg

DRUGS (3)
  1. AVONEX [Suspect]
     Indication: MULTIPLE SCLEROSIS
     Route: 030
     Dates: start: 20060501
  2. AVONEX [Suspect]
     Route: 030
     Dates: start: 20060501
  3. AVONEX [Suspect]
     Route: 030
     Dates: start: 20051201, end: 20051230

REACTIONS (10)
  - COGNITIVE DISORDER [None]
  - DRUG EFFECT DECREASED [None]
  - DYSPNOEA [None]
  - HEAT EXHAUSTION [None]
  - LOSS OF CONSCIOUSNESS [None]
  - MALAISE [None]
  - MULTIPLE SCLEROSIS RELAPSE [None]
  - NERVOUS SYSTEM DISORDER [None]
  - STRESS [None]
  - TEMPERATURE INTOLERANCE [None]
